FAERS Safety Report 17872493 (Version 2)
Quarter: 2020Q2

REPORT INFORMATION
  Report Type: Report from Study
  Country: CA (occurrence: CA)
  Receive Date: 20200608
  Receipt Date: 20200616
  Transmission Date: 20200714
  Serious: Yes (Hospitalization)
  Sender: FDA-Public Use
  Company Number: CA-JNJFOC-20200537450

PATIENT
  Age: 53 Year
  Sex: Male
  Weight: 77.3 kg

DRUGS (1)
  1. REMICADE [Suspect]
     Active Substance: INFLIXIMAB
     Indication: CROHN^S DISEASE
     Route: 042
     Dates: start: 20200228, end: 20200605

REACTIONS (3)
  - Psoriasis [Unknown]
  - Renal neoplasm [Unknown]
  - Post procedural infection [Unknown]

NARRATIVE: CASE EVENT DATE: 20200501
